FAERS Safety Report 7295140-6 (Version None)
Quarter: 2011Q1

REPORT INFORMATION
  Report Type: 
  Country: None (occurrence: None)
  Receive Date: 20110216
  Receipt Date: 20110207
  Transmission Date: 20110831
  Serious: Yes (Hospitalization)
  Sender: FDA-Public Use
  Company Number: JP-NOVOPROD-323017

PATIENT
  Age: 60 Year
  Sex: Female

DRUGS (1)
  1. VICTOZA [Suspect]
     Indication: DIABETES MELLITUS
     Dosage: 0.3 MG, QD
     Route: 058

REACTIONS (2)
  - HYPOGLYCAEMIA [None]
  - DECREASED APPETITE [None]
